FAERS Safety Report 8080938-7 (Version None)
Quarter: 2012Q1

REPORT INFORMATION
  Report Type: 
  Country: None (occurrence: None)
  Receive Date: 20120130
  Receipt Date: 20120120
  Transmission Date: 20120608
  Serious: Yes (Hospitalization)
  Sender: FDA-Public Use
  Company Number: US-ABBOTT-12P-163-0896018-00

PATIENT
  Sex: Female

DRUGS (1)
  1. LUPRON DEPOT [Suspect]
     Indication: UTERINE LEIOMYOMA
     Dates: start: 20061001, end: 20061101

REACTIONS (8)
  - GENERAL PHYSICAL HEALTH DETERIORATION [None]
  - BLOOD PRESSURE FLUCTUATION [None]
  - APPARENT DEATH [None]
  - NAUSEA [None]
  - VOMITING [None]
  - MALAISE [None]
  - ACTIVITIES OF DAILY LIVING IMPAIRED [None]
  - VISUAL IMPAIRMENT [None]
